FAERS Safety Report 18272812 (Version 1)
Quarter: 2020Q3

REPORT INFORMATION
  Report Type: Spontaneous
  Country: SE (occurrence: SE)
  Receive Date: 20200916
  Receipt Date: 20200916
  Transmission Date: 20201103
  Serious: Yes (Other)
  Sender: FDA-Public Use
  Company Number: SE-009507513-2009SWE004150

PATIENT
  Age: 33 Year
  Sex: Female
  Weight: 64 kg

DRUGS (1)
  1. NEXPLANON [Suspect]
     Active Substance: ETONOGESTREL
     Indication: CONTRACEPTION
     Dosage: UNK
     Dates: start: 20190410, end: 20200730

REACTIONS (6)
  - Fungal infection [Not Recovered/Not Resolved]
  - Genital pain [Not Recovered/Not Resolved]
  - Pruritus genital [Not Recovered/Not Resolved]
  - Weight increased [Not Recovered/Not Resolved]
  - Metrorrhagia [Not Recovered/Not Resolved]
  - Acne [Not Recovered/Not Resolved]

NARRATIVE: CASE EVENT DATE: 20190701
